FAERS Safety Report 5991485-8 (Version None)
Quarter: 2008Q4

REPORT INFORMATION
  Report Type: 
  Country: None (occurrence: None)
  Receive Date: 20081211
  Receipt Date: 20080429
  Transmission Date: 20090506
  Serious: No
  Sender: FDA-Public Use
  Company Number: US-AMGEN-KDL276059

PATIENT
  Sex: Female
  Weight: 67.2 kg

DRUGS (14)
  1. ENBREL [Suspect]
     Indication: RHEUMATOID ARTHRITIS
     Route: 058
     Dates: start: 20060727
  2. LEFLUNOMIDE [Concomitant]
     Route: 048
  3. INDERAL LA [Concomitant]
  4. CELEBREX [Concomitant]
     Dates: start: 20060227, end: 20080227
  5. NAPROXEN [Concomitant]
  6. LYRICA [Concomitant]
  7. LYRICA [Concomitant]
  8. LASIX [Concomitant]
  9. NEXIUM [Concomitant]
  10. ZETIA [Concomitant]
  11. ESTRADIOL [Concomitant]
  12. CITALOPRAM HYDROBROMIDE [Concomitant]
  13. ALPRAZOLAM [Concomitant]
  14. ASPIRIN [Concomitant]

REACTIONS (6)
  - ADVERSE DRUG REACTION [None]
  - INJECTION SITE IRRITATION [None]
  - INJECTION SITE PAIN [None]
  - LIP SWELLING [None]
  - RHEUMATOID FACTOR INCREASED [None]
  - TREMOR [None]
